FAERS Safety Report 18616638 (Version 2)
Quarter: 2021Q1

REPORT INFORMATION
  Report Type: Report from Study
  Country: US (occurrence: US)
  Receive Date: 20201215
  Receipt Date: 20210121
  Transmission Date: 20210419
  Serious: No
  Sender: FDA-Public Use
  Company Number: NVSC2020US331821

PATIENT
  Sex: Female

DRUGS (2)
  1. TASIGNA [Suspect]
     Active Substance: NILOTINIB
     Dosage: UNK
     Route: 065
  2. TASIGNA [Suspect]
     Active Substance: NILOTINIB
     Indication: CHRONIC MYELOID LEUKAEMIA
     Dosage: 300 MG, Q12H (2 CAPSULES OF 150 MG (300 MG))
     Route: 048
     Dates: start: 20201116

REACTIONS (4)
  - Product dose omission issue [Unknown]
  - Rash erythematous [Recovering/Resolving]
  - Rash pruritic [Unknown]
  - Skin mass [Recovering/Resolving]
